FAERS Safety Report 5358763-7 (Version None)
Quarter: 2007Q2

REPORT INFORMATION
  Report Type: 
  Country: None (occurrence: None)
  Receive Date: 20070615
  Receipt Date: 20070605
  Transmission Date: 20071010
  Serious: Yes (Death)
  Sender: FDA-Public Use
  Company Number: GR-AMGEN-UK227821

PATIENT
  Age: 7 Year
  Sex: Female
  Weight: 25 kg

DRUGS (9)
  1. KINERET [Suspect]
     Indication: VASCULITIS
     Route: 058
     Dates: start: 20060414, end: 20070420
  2. CORTICOSTEROIDS [Concomitant]
     Route: 065
     Dates: start: 20010801
  3. CYCLOSPORINE [Suspect]
     Route: 065
     Dates: start: 20010801
  4. METHOTREXATE [Suspect]
     Route: 065
     Dates: start: 20010801
  5. AZATHIOPRINE [Suspect]
     Route: 065
     Dates: start: 20010801
  6. ETANERCEPT [Suspect]
     Route: 065
  7. PREZOLON [Concomitant]
     Route: 048
     Dates: start: 20010801, end: 20070512
  8. CYCLOPHOSPHAMIDE [Concomitant]
     Route: 042
     Dates: start: 20070427, end: 20070427
  9. METHYLPREDNISOLONE 16MG TAB [Concomitant]
     Route: 042
     Dates: start: 20070503, end: 20070505

REACTIONS (3)
  - HISTIOCYTOSIS HAEMATOPHAGIC [None]
  - IMMUNOSUPPRESSION [None]
  - PARVOVIRUS INFECTION [None]
